FAERS Safety Report 9384583 (Version 2)
Quarter: 2013Q3

REPORT INFORMATION
  Report Type: Spontaneous
  Country: JP (occurrence: JP)
  Receive Date: 20130705
  Receipt Date: 20130715
  Transmission Date: 20140515
  Serious: Yes (Other)
  Sender: FDA-Public Use
  Company Number: JP-JNJFOC-20130619753

PATIENT
  Age: 62 Year
  Sex: Male
  Weight: 62 kg

DRUGS (8)
  1. XARELTO [Suspect]
     Indication: THROMBOSIS PROPHYLAXIS
     Route: 048
     Dates: start: 20130528, end: 20130607
  2. CIBENZOLINE SUCCINATE [Suspect]
     Indication: ARRHYTHMIA
     Route: 048
     Dates: start: 20130528, end: 20130607
  3. BISOPROLOL FUMARATE [Concomitant]
     Indication: HYPERTENSION
     Route: 048
     Dates: start: 20080422
  4. MICARDIS [Concomitant]
     Indication: HYPERTENSION
     Route: 048
     Dates: start: 20110222
  5. ACECOL [Concomitant]
     Indication: HYPERTENSION
     Route: 048
     Dates: start: 20070911
  6. LIPITOR [Concomitant]
     Indication: LIPIDS ABNORMAL
     Route: 048
     Dates: start: 20070911
  7. ALLOPURINOL [Concomitant]
     Indication: HYPERURICAEMIA
     Route: 048
     Dates: start: 20070911
  8. ETIZOLAM [Concomitant]
     Indication: ANXIETY
     Route: 048
     Dates: start: 20070911

REACTIONS (1)
  - Drug eruption [Recovered/Resolved]
